FAERS Safety Report 21271418 (Version 1)
Quarter: 2022Q3

REPORT INFORMATION
  Report Type: Spontaneous
  Country: US (occurrence: US)
  Receive Date: 20220830
  Receipt Date: 20220830
  Transmission Date: 20221026
  Serious: No
  Sender: FDA-Public Use
  Company Number: US-PFIZER INC-202201102789

PATIENT

DRUGS (1)
  1. PAXLOVID [Suspect]
     Active Substance: NIRMATRELVIR\RITONAVIR
     Indication: COVID-19 treatment
     Dosage: TWO TABLETS TWICE A DAY
     Route: 048
     Dates: start: 20220826

REACTIONS (2)
  - Tremor [Unknown]
  - Product dose confusion [Unknown]

NARRATIVE: CASE EVENT DATE: 20220801
